FAERS Safety Report 18741096 (Version 4)
Quarter: 2022Q2

REPORT INFORMATION
  Report Type: Report from Study
  Country: US (occurrence: US)
  Receive Date: 20210114
  Receipt Date: 20220418
  Transmission Date: 20220721
  Serious: Yes (Hospitalization)
  Sender: FDA-Public Use
  Company Number: US-BAXTER-2021BAX000522

PATIENT
  Age: 14 Year
  Sex: Female
  Weight: 46.4 kg

DRUGS (25)
  1. CYCLOPHOSPHAMIDE [Suspect]
     Active Substance: CYCLOPHOSPHAMIDE
     Indication: Embryonal rhabdomyosarcoma
     Dosage: 1 TO 19 COURSES
     Route: 065
     Dates: start: 20190815
  2. CYCLOPHOSPHAMIDE [Suspect]
     Active Substance: CYCLOPHOSPHAMIDE
     Dosage: LAST ADMINISTERED DATE
     Route: 065
     Dates: start: 20201123, end: 20201123
  3. CYCLOPHOSPHAMIDE [Suspect]
     Active Substance: CYCLOPHOSPHAMIDE
     Dosage: 1200MG/M2 PER PROTOCOL (FOR PATIENTS MORE THAN OR EQUAL TO 0.6 M2) ON D1 OF C1AND3
     Route: 065
  4. CYCLOPHOSPHAMIDE [Suspect]
     Active Substance: CYCLOPHOSPHAMIDE
     Dosage: 1200MG/M2 PER PROTOCOL (FOR PATIENTS MORE THAN OR EQUAL TO 0.6 M2) ON D1 OF C5,8,10
     Route: 065
  5. CYCLOPHOSPHAMIDE [Suspect]
     Active Substance: CYCLOPHOSPHAMIDE
     Dosage: 1200MG/M2 PER PROTOCOL (FOR PATIENTS MORE THAN OR EQUAL TO 0.6 M2) ON D1 OF C12,14
     Route: 065
  6. TEMSIROLIMUS [Suspect]
     Active Substance: TEMSIROLIMUS
     Indication: Embryonal rhabdomyosarcoma
     Dosage: 1 TO 19 COURSES
     Route: 065
     Dates: start: 20190815
  7. TEMSIROLIMUS [Suspect]
     Active Substance: TEMSIROLIMUS
     Dosage: LAST ADMINISTERED DATE
     Route: 065
     Dates: start: 20200605, end: 20200605
  8. TEMSIROLIMUS [Suspect]
     Active Substance: TEMSIROLIMUS
     Dosage: CYCLES 1-4 (CYCLE = 21 DAYS) TEMSIROLIMUS: 15MG/M2 PER PROTOCOL DAY 1, 8, AND 15
     Route: 042
  9. TEMSIROLIMUS [Suspect]
     Active Substance: TEMSIROLIMUS
     Dosage: CYCLES 5-10 (CYCLE = 21 DAYS) 2  ON DAYS 1, 8, AND 15 C8, 9 AND 10
     Route: 042
  10. TEMSIROLIMUS [Suspect]
     Active Substance: TEMSIROLIMUS
     Dosage: CYCLES 11-14 (CYCLE = 21 DAYS) DAYS 1, 8, AND 15
     Route: 042
     Dates: end: 20200605
  11. CAMPTOSAR [Suspect]
     Active Substance: IRINOTECAN HYDROCHLORIDE
     Indication: Embryonal rhabdomyosarcoma
     Dosage: 1 TO 19 COURSES
     Route: 065
     Dates: start: 20190815
  12. CAMPTOSAR [Suspect]
     Active Substance: IRINOTECAN HYDROCHLORIDE
     Dosage: LAST ADMINISTERED DATE
     Route: 065
     Dates: start: 20200321, end: 20200321
  13. CAMPTOSAR [Suspect]
     Active Substance: IRINOTECAN HYDROCHLORIDE
     Dosage: CYCLES 1-4 (CYCLE = 21 DAYS) 4 50 MG/M2, D1-5 OF C2 AND 4
     Route: 042
  14. CAMPTOSAR [Suspect]
     Active Substance: IRINOTECAN HYDROCHLORIDE
     Dosage: CYCLES 5-10 (CYCLE = 21 DAYS) DAYS 1-5 OF C6, 7, 9
     Route: 042
  15. CAMPTOSAR [Suspect]
     Active Substance: IRINOTECAN HYDROCHLORIDE
     Dosage: CYCLES 11-14 (CYCLE = 21 DAYS) DAY 1-5 OF C11 AND 13
     Route: 042
     Dates: end: 20210321
  16. VINCRISTINE SULFATE [Suspect]
     Active Substance: VINCRISTINE SULFATE
     Indication: Embryonal rhabdomyosarcoma
     Dosage: 1 TO 19 COURSES
     Route: 065
     Dates: start: 20190815
  17. VINCRISTINE SULFATE [Suspect]
     Active Substance: VINCRISTINE SULFATE
     Dosage: LAST ADMINISTERED DATE
     Route: 065
     Dates: start: 20200521, end: 20200521
  18. VINCRISTINE SULFATE [Suspect]
     Active Substance: VINCRISTINE SULFATE
     Dosage: CYCLES 1-4 (21 DAYS C) 1.5 MG/M2, D 1,8,15 OF C 1-4
     Route: 042
  19. VINCRISTINE SULFATE [Suspect]
     Active Substance: VINCRISTINE SULFATE
     Dosage: CYCLES 5-10 (CYCLE = 21 DAYS)  ON D1 OF C5AND10 AND D1,8 OF C6,7,9 AND D1,8,15 OF C8,
     Route: 042
  20. VINCRISTINE SULFATE [Suspect]
     Active Substance: VINCRISTINE SULFATE
     Dosage: CYCLES 11-14 (CYCLE = 21 DAYS) (IV OVER 1 MINUTE OR INFUSION VIA MINIBAG ON DAYS 1, 8 AND 15 OF CYCL
     Route: 042
     Dates: end: 20200521
  21. DACTINOMYCIN [Suspect]
     Active Substance: DACTINOMYCIN
     Indication: Embryonal rhabdomyosarcoma
     Dosage: 1 TO 19 COURSES
     Route: 065
     Dates: start: 20190815
  22. DACTINOMYCIN [Suspect]
     Active Substance: DACTINOMYCIN
     Dosage: LAST ADMINISTERED DOSE
     Route: 065
     Dates: end: 20200521
  23. DACTINOMYCIN [Suspect]
     Active Substance: DACTINOMYCIN
     Dosage: 0.05MG/KG PER PROTOCOL (FOR PATIENTS MORE THAN OR EQUAL TO 14 KG) ON D1 OF C1AND3
     Route: 065
  24. DACTINOMYCIN [Suspect]
     Active Substance: DACTINOMYCIN
     Dosage: 0.05MG/KG PER PROTOCOL (FOR PATIENTS MORE THAN OR EQUAL TO 14 KG) ON D1 OF C5,8,10
     Route: 065
  25. DACTINOMYCIN [Suspect]
     Active Substance: DACTINOMYCIN
     Dosage: 0.05MG/KG PER PROTOCOL (FOR PATIENTS MORE THAN OR EQUAL TO 14 KG) ON D1 OF C12,14
     Route: 065

REACTIONS (1)
  - Middle ear inflammation [Not Recovered/Not Resolved]

NARRATIVE: CASE EVENT DATE: 20201215
